FAERS Safety Report 12926344 (Version 3)
Quarter: 2016Q4

REPORT INFORMATION
  Report Type: Spontaneous
  Country: CN (occurrence: CN)
  Receive Date: 20161109
  Receipt Date: 20161229
  Transmission Date: 20170207
  Serious: Yes (Hospitalization, Other)
  Sender: FDA-Public Use
  Company Number: CN-BAYER-2016-211728

PATIENT
  Age: 50 Year
  Sex: Male

DRUGS (2)
  1. ENTECAVIR. [Concomitant]
     Active Substance: ENTECAVIR
     Indication: ANTIVIRAL TREATMENT
     Route: 048
  2. NEXAVAR [Suspect]
     Active Substance: SORAFENIB
     Indication: HEPATOCELLULAR CARCINOMA
     Dosage: 400 MG, BID
     Route: 048
     Dates: start: 20151210, end: 2016

REACTIONS (13)
  - Embolism [None]
  - Liver disorder [None]
  - Embolism [None]
  - Metastasis [None]
  - Alpha 1 foetoprotein increased [None]
  - Hepatocellular carcinoma [None]
  - Tumour embolism [None]
  - Embolism [None]
  - Alpha 1 foetoprotein increased [None]
  - Hepatic cancer [None]
  - Hepatic cancer [None]
  - Alpha 1 foetoprotein increased [None]
  - Hepatomegaly [None]

NARRATIVE: CASE EVENT DATE: 2016
